FAERS Safety Report 5111200-X (Version None)
Quarter: 2006Q3

REPORT INFORMATION
  Report Type: 
  Country: None (occurrence: None)
  Receive Date: 20060920
  Receipt Date: 20060920
  Transmission Date: 20061208
  Serious: Yes (Other)
  Sender: FDA-Public Use
  Company Number: None

PATIENT
  Age: 5 Year
  Sex: Female
  Weight: 15.8 kg

DRUGS (2)
  1. ADVAIR DISKUS 500/50 [Suspect]
     Indication: ASTHMA
     Dosage: 1 PUFF BID INHAL [YERS]
     Route: 055
  2. SINGULAIR [Suspect]
     Indication: ASTHMA
     Dosage: 1 TAB QHS PO [YEARS]
     Route: 048

REACTIONS (10)
  - AGGRESSION [None]
  - AMNESIA [None]
  - COMPLEX PARTIAL SEIZURES [None]
  - CRYING [None]
  - DYSGRAPHIA [None]
  - EMOTIONAL DISORDER [None]
  - ENCEPHALITIS [None]
  - FORMICATION [None]
  - SELF MUTILATION [None]
  - SUICIDAL BEHAVIOUR [None]
